FAERS Safety Report 6146701-9 (Version None)
Quarter: 2009Q2

REPORT INFORMATION
  Report Type: 
  Country: None (occurrence: None)
  Receive Date: 20090407
  Receipt Date: 20090401
  Transmission Date: 20091009
  Serious: Yes (Other)
  Sender: FDA-Public Use
  Company Number: PHHY2009CA12424

PATIENT

DRUGS (1)
  1. AREDIA [Suspect]
     Indication: MULTIPLE MYELOMA

REACTIONS (1)
  - BONE EROSION [None]
